FAERS Safety Report 6148709-6 (Version None)
Quarter: 2009Q2

REPORT INFORMATION
  Report Type: 
  Country: None (occurrence: None)
  Receive Date: 20090406
  Receipt Date: 20090406
  Transmission Date: 20091009
  Serious: No
  Sender: FDA-Public Use
  Company Number: None

PATIENT
  Age: 28 Year
  Sex: Female

DRUGS (2)
  1. WELLBUTRIN XL [Suspect]
     Indication: DEPRESSION
     Dosage: 150MG   1TABLET/DAY
     Route: 048
     Dates: start: 20090301, end: 20090301
  2. LEXAPRO [Concomitant]

REACTIONS (1)
  - NIGHTMARE [None]
